FAERS Safety Report 4720240-1 (Version None)
Quarter: 2005Q3

REPORT INFORMATION
  Report Type: 
  Country: None (occurrence: None)
  Receive Date: 20050721
  Receipt Date: 20050627
  Transmission Date: 20060218
  Serious: Yes (Life-Threatening, Hospitalization)
  Sender: FDA-Public Use
  Company Number: DE-JNJFOC-20050700421

PATIENT
  Sex: Female

DRUGS (2)
  1. ITRACOL [Suspect]
     Indication: PROPHYLAXIS
     Route: 048
     Dates: start: 20050503, end: 20050516
  2. VINCRISTINE [Interacting]
     Indication: NON-HODGKIN'S LYMPHOMA
     Route: 042

REACTIONS (2)
  - DRUG INTERACTION [None]
  - SUBILEUS [None]
